FAERS Safety Report 20791544 (Version 2)
Quarter: 2022Q2

REPORT INFORMATION
  Report Type: Other
  Country: GB (occurrence: GB)
  Receive Date: 20220505
  Receipt Date: 20220513
  Transmission Date: 20220720
  Serious: No
  Sender: FDA-Public Use
  Company Number: GB-ASTPRD-AER-2022-001082

PATIENT
  Age: 73 Year
  Sex: Female

DRUGS (9)
  1. LANSOPRAZOLE [Suspect]
     Active Substance: LANSOPRAZOLE
     Indication: Product used for unknown indication
     Dosage: UNK
     Route: 065
  2. LEVOTHYROXINE [Suspect]
     Active Substance: LEVOTHYROXINE
     Indication: Product used for unknown indication
     Dosage: UNK
     Route: 065
  3. AVASTIN [Suspect]
     Active Substance: BEVACIZUMAB
     Indication: Choroidal neovascularisation
     Dosage: UNK
     Route: 065
  4. MIRABEGRON [Suspect]
     Active Substance: MIRABEGRON
     Indication: Hypertonic bladder
     Dosage: 50 MILLIGRAM, QD
     Route: 065
     Dates: start: 2021
  5. MIRABEGRON [Suspect]
     Active Substance: MIRABEGRON
     Dosage: 25 MILLIGRAM, QD
     Route: 065
  6. MIRABEGRON [Suspect]
     Active Substance: MIRABEGRON
     Dosage: 50 MILLIGRAM, QD
     Route: 065
     Dates: start: 2021
  7. PREGABALIN [Suspect]
     Active Substance: PREGABALIN
     Indication: Product used for unknown indication
     Dosage: UNK
     Route: 065
  8. ARIPIPRAZOLE [Suspect]
     Active Substance: ARIPIPRAZOLE
     Indication: Product used for unknown indication
     Dosage: UNK
     Route: 065
  9. HYDROMOOR [Concomitant]
     Indication: Dry eye
     Dosage: UNK UNK, PRN
     Route: 065

REACTIONS (6)
  - Intraocular pressure increased [Unknown]
  - Eyelid pain [Recovered/Resolved]
  - Eyelids pruritus [Recovering/Resolving]
  - Swelling of eyelid [Recovered/Resolved]
  - Drug ineffective [Unknown]
  - Product dose omission in error [Unknown]
